FAERS Safety Report 22592399 (Version 2)
Quarter: 2023Q2

REPORT INFORMATION
  Report Type: Spontaneous
  Country: IT (occurrence: IT)
  Receive Date: 20230613
  Receipt Date: 20230615
  Transmission Date: 20230722
  Serious: Yes (Other)
  Sender: FDA-Public Use
  Company Number: IT-MINISAL02-928133

PATIENT
  Age: 39 Year
  Sex: Male

DRUGS (5)
  1. PIPERACILLIN AND TAZOBACTAM [Suspect]
     Active Substance: PIPERACILLIN SODIUM\TAZOBACTAM SODIUM
     Indication: Infection
     Dosage: 4.5 GRAM,(4.5 G X 3 DAYS)
     Route: 042
     Dates: start: 20230412, end: 20230423
  2. ENOXAPARIN [Suspect]
     Active Substance: ENOXAPARIN
     Indication: Thrombosis prophylaxis
     Dosage: 4000 INTERNATIONAL UNIT(4,000 IU PER DAY)
     Route: 058
     Dates: start: 20230412
  3. BREVA [Concomitant]
     Active Substance: ALBUTEROL\IPRATROPIUM
     Indication: Bronchospasm
     Dosage: 5 DOSAGE FORM(5 DROPS DAY)
     Route: 065
     Dates: start: 20230412
  4. FLUIMUCIL [Concomitant]
     Active Substance: ACETYLCYSTEINE
     Indication: Bronchitis
     Dosage: 1 DOSAGE FORM(1 DOSE UNIT PER DAY)
     Route: 042
     Dates: start: 20230412
  5. PANTOPRAZOLE SODIUM [Concomitant]
     Active Substance: PANTOPRAZOLE SODIUM
     Indication: Prophylaxis
     Dosage: 40 MILLIGRAM(40 MG DAY)
     Route: 048
     Dates: start: 20230412

REACTIONS (2)
  - Anaemia [Recovering/Resolving]
  - Melaena [Recovering/Resolving]

NARRATIVE: CASE EVENT DATE: 20230423
